FAERS Safety Report 8759891 (Version 3)
Quarter: 2013Q1

REPORT INFORMATION
  Report Type: Spontaneous
  Country: US (occurrence: US)
  Receive Date: 20120829
  Receipt Date: 20130107
  Transmission Date: 20140127
  Serious: No
  Sender: FDA-Public Use
  Company Number: US-009507513-1208USA010407

PATIENT
  Age: 26 Year
  Sex: Female
  Weight: 63.39 kg

DRUGS (2)
  1. NEXPLANON [Suspect]
     Indication: CONTRACEPTION
     Dosage: 1 DF, UNK
     Route: 059
     Dates: start: 20120821, end: 20120821
  2. NEXPLANON [Suspect]
     Dosage: 1 UNK, UNK
     Route: 059
     Dates: start: 20120821

REACTIONS (2)
  - Device difficult to use [Unknown]
  - No adverse event [Unknown]
